FAERS Safety Report 10977156 (Version 1)
Quarter: 2015Q1

REPORT INFORMATION
  Report Type: Spontaneous
  Country: GB (occurrence: None)
  Receive Date: 20150330
  Receipt Date: 20150330
  Transmission Date: 20150721
  Serious: Yes (Death, Hospitalization, Other)
  Sender: FDA-Public Use
  Company Number: FK201501502

PATIENT
  Age: 69 Year
  Sex: Male
  Weight: 72 kg

DRUGS (4)
  1. CISPLATIN (MANUFACTURER UNKNOWN) (CISPLATIN) (CISPLATIN) [Suspect]
     Active Substance: CISPLATIN
     Indication: ADENOCARCINOMA GASTRIC
     Dosage: (NOT OTHERWISE SPECIFIED)
     Route: 042
     Dates: start: 20090911
  2. EPIRUBICIN (MANUFACTURER UNKNOWN) (EPIRUBICIN HYDROCHLORIDE) (EPIRUBICIN HYDROCHLORIDE) [Suspect]
     Active Substance: EPIRUBICIN
     Indication: ADENOCARCINOMA GASTRIC
     Dosage: (NOT OTHERWISE SPECIFIED)
     Route: 042
     Dates: start: 20090911
  3. XELODA [Suspect]
     Active Substance: CAPECITABINE
     Indication: ADENOCARCINOMA GASTRIC
     Route: 048
  4. AVASTIN [Suspect]
     Active Substance: BEVACIZUMAB
     Indication: ADENOCARCINOMA GASTRIC
     Dosage: (NOT OTHERWISE SPECIFIED)
     Route: 042

REACTIONS (10)
  - Nausea [None]
  - Gastrointestinal sounds abnormal [None]
  - Multi-organ failure [None]
  - Abdominal adhesions [None]
  - Retching [None]
  - Gastrointestinal ischaemia [None]
  - Abdominal distension [None]
  - Oesophageal carcinoma [None]
  - Abdominal pain [None]
  - Arterial insufficiency [None]

NARRATIVE: CASE EVENT DATE: 20100622
